FAERS Safety Report 8062661 (Version 2)
Quarter: 2013Q2

REPORT INFORMATION
  Report Type: Spontaneous
  Country: US (occurrence: US)
  Receive Date: 20110801
  Receipt Date: 20130417
  Transmission Date: 20140414
  Serious: Yes (Other)
  Sender: FDA-Public Use
  Company Number: US-ROCHE-754388

PATIENT
  Age: 38 Year
  Sex: Female
  Weight: 49.9 kg

DRUGS (5)
  1. ACCUTANE [Suspect]
     Indication: ACNE
     Dosage: 20 MG, 70 MG DAILY FOR 2 MONTHS AND 80 MG DAILY FOR 5 MONTHS
     Route: 048
     Dates: start: 199911, end: 200106
  2. EFFEXOR XR [Concomitant]
     Indication: ANXIETY
  3. TYLENOL [Concomitant]
  4. CLARITIN [Concomitant]
  5. PROZAC [Concomitant]

REACTIONS (10)
  - Colitis ulcerative [Unknown]
  - Gastrointestinal injury [Unknown]
  - Gastric ulcer [Recovering/Resolving]
  - Inflammatory bowel disease [Unknown]
  - Depression [Unknown]
  - Xerosis [Unknown]
  - Irritable bowel syndrome [Unknown]
  - Haemorrhoids [Unknown]
  - Lip dry [Unknown]
  - Chapped lips [Unknown]
